FAERS Safety Report 6815385-6 (Version None)
Quarter: 2010Q3

REPORT INFORMATION
  Report Type: 
  Country: None (occurrence: None)
  Receive Date: 20100701
  Receipt Date: 20100701
  Transmission Date: 20110219
  Serious: Yes (Life-Threatening, Hospitalization, Other)
  Sender: FDA-Public Use
  Company Number: None

PATIENT
  Age: 44 Year
  Sex: Female
  Weight: 78.4723 kg

DRUGS (1)
  1. PEGVISOMANT 10 MG SUBCUT DAILY PHARMACIA CORPORATION [Suspect]
     Indication: ACROMEGALY
     Dosage: 10 MG DAILY SUBCUT
     Route: 058
     Dates: start: 20100310, end: 20100517

REACTIONS (1)
  - HEPATIC FAILURE [None]
